FAERS Safety Report 12143155 (Version 4)
Quarter: 2017Q1

REPORT INFORMATION
  Report Type: Spontaneous
  Country: AT (occurrence: AT)
  Receive Date: 20160303
  Receipt Date: 20170127
  Transmission Date: 20170428
  Serious: Yes (Other)
  Sender: FDA-Public Use
  Company Number: PHHY2016AT026091

PATIENT
  Age: 72 Year
  Sex: Female

DRUGS (6)
  1. ACLASTA [Suspect]
     Active Substance: ZOLEDRONIC ACID
     Dosage: UNK
     Route: 065
     Dates: start: 2013
  2. OLEOVIT [Concomitant]
     Indication: CALCIUM DEFICIENCY
     Dosage: UNK UNK, QW
     Route: 065
  3. CALCIUM [Concomitant]
     Active Substance: CALCIUM
     Indication: CALCIUM DEFICIENCY
     Dosage: UNK UNK, QD
     Route: 065
  4. ACLASTA [Suspect]
     Active Substance: ZOLEDRONIC ACID
     Indication: PRODUCT USED FOR UNKNOWN INDICATION
     Dosage: ANNUALLY
     Route: 065
     Dates: start: 2012
  5. ACLASTA [Suspect]
     Active Substance: ZOLEDRONIC ACID
     Dosage: UNK
     Route: 065
     Dates: start: 20151111
  6. ACLASTA [Suspect]
     Active Substance: ZOLEDRONIC ACID
     Dosage: UNK
     Route: 065
     Dates: start: 2014

REACTIONS (9)
  - Bone erosion [Unknown]
  - Tibia fracture [Unknown]
  - Gingivitis [Unknown]
  - Oral pustule [Not Recovered/Not Resolved]
  - Tooth loss [Unknown]
  - Periodontal disease [Unknown]
  - Inflammation [Not Recovered/Not Resolved]
  - Fistula [Unknown]
  - Osteonecrosis of jaw [Not Recovered/Not Resolved]

NARRATIVE: CASE EVENT DATE: 2015
